FAERS Safety Report 6748414-9 (Version None)
Quarter: 2010Q2

REPORT INFORMATION
  Report Type: 
  Country: None (occurrence: None)
  Receive Date: 20100527
  Receipt Date: 20100527
  Transmission Date: 20101027
  Serious: Yes (Disabling)
  Sender: FDA-Public Use
  Company Number: None

PATIENT
  Age: 47 Year
  Sex: Female
  Weight: 65.7716 kg

DRUGS (2)
  1. LATISSE [Suspect]
     Indication: EYELASH DISCOLOURATION
     Dosage: SEE IMAGE
     Route: 061
  2. LATISSE [Suspect]
     Indication: GROWTH OF EYELASHES
     Dosage: SEE IMAGE
     Route: 061

REACTIONS (3)
  - EYELID OEDEMA [None]
  - SKIN DISCOLOURATION [None]
  - VISION BLURRED [None]
